FAERS Safety Report 17853722 (Version 2)
Quarter: 2020Q2

REPORT INFORMATION
  Report Type: Spontaneous
  Country: JP (occurrence: JP)
  Receive Date: 20200602
  Receipt Date: 20200622
  Transmission Date: 20200714
  Serious: Yes (Death, Disabling)
  Sender: FDA-Public Use
  Company Number: JP-BAXTER-2019BAX020074

PATIENT
  Age: 68 Year
  Sex: Male

DRUGS (30)
  1. ETOPOSIDE. [Concomitant]
     Active Substance: ETOPOSIDE
     Indication: ANGIOIMMUNOBLASTIC T-CELL LYMPHOMA
     Route: 041
     Dates: start: 20181109, end: 20181112
  2. VALIXA [Concomitant]
     Active Substance: VALGANCICLOVIR
     Indication: CYTOMEGALOVIRUS INFECTION
     Route: 048
     Dates: start: 20181031, end: 20181111
  3. FLUCONAZOLE. [Concomitant]
     Active Substance: FLUCONAZOLE
     Indication: FUNGAL INFECTION
     Route: 048
     Dates: start: 20181109, end: 20181111
  4. DEXART [Concomitant]
     Active Substance: DEXAMETHASONE SODIUM PHOSPHATE
     Indication: ANGIOIMMUNOBLASTIC T-CELL LYMPHOMA
     Route: 041
     Dates: start: 20181109, end: 20181115
  5. BAKTAR [Concomitant]
     Active Substance: SULFAMETHOXAZOLE\TRIMETHOPRIM
     Indication: PNEUMOCYSTIS JIROVECII PNEUMONIA
     Dosage: 1 DOSAGE FORM/DAY
     Route: 048
  6. ACICLOVIR [Concomitant]
     Active Substance: ACYCLOVIR
     Indication: ANTIVIRAL PROPHYLAXIS
     Route: 048
     Dates: start: 20181109
  7. GRANISETRON [Concomitant]
     Active Substance: GRANISETRON
     Indication: ANGIOIMMUNOBLASTIC T-CELL LYMPHOMA
     Route: 041
     Dates: start: 20181110, end: 20181113
  8. MIDAZOLAM. [Concomitant]
     Active Substance: MIDAZOLAM
     Indication: SEDATION
     Route: 041
     Dates: start: 20181114, end: 20181114
  9. EMEND [Concomitant]
     Active Substance: APREPITANT
     Route: 048
     Dates: start: 20181110, end: 20181111
  10. CONTOMIN [Concomitant]
     Active Substance: CHLORPROMAZINE
     Indication: ANGIOIMMUNOBLASTIC T-CELL LYMPHOMA
     Route: 048
     Dates: start: 20181109, end: 20181111
  11. ENDOXAN 1G [Suspect]
     Active Substance: CYCLOPHOSPHAMIDE
     Indication: BONE MARROW CONDITIONING REGIMEN
  12. ALOXI [Concomitant]
     Active Substance: PALONOSETRON HYDROCHLORIDE
     Indication: ANGIOIMMUNOBLASTIC T-CELL LYMPHOMA
     Route: 041
     Dates: start: 20181109, end: 20181109
  13. ALKERAN [Concomitant]
     Active Substance: MELPHALAN
     Indication: ANGIOIMMUNOBLASTIC T-CELL LYMPHOMA
     Route: 041
     Dates: start: 20181112, end: 20181112
  14. SOLU-CORTEF [Concomitant]
     Active Substance: HYDROCORTISONE SODIUM SUCCINATE
     Indication: ALLERGY PROPHYLAXIS
     Route: 041
     Dates: start: 20181114, end: 20181114
  15. POLYGLOBIN-N [Concomitant]
     Indication: INFECTION
     Route: 041
     Dates: start: 20181115, end: 20181115
  16. URSO [Concomitant]
     Active Substance: URSODIOL
     Indication: DEFICIENCY OF BILE SECRETION
     Route: 048
  17. LASIX [Concomitant]
     Active Substance: FUROSEMIDE
     Indication: POLYURIA
     Route: 041
     Dates: start: 20181109, end: 20181110
  18. NORADRENALINE [Concomitant]
     Active Substance: NOREPINEPHRINE
     Indication: BLOOD PRESSURE DECREASED
     Route: 041
     Dates: start: 20181115
  19. TAZOPIPE [Concomitant]
     Active Substance: PIPERACILLIN SODIUM\TAZOBACTAM SODIUM
     Indication: FEBRILE NEUTROPENIA
     Route: 041
     Dates: start: 20181115
  20. TAZOPIPE [Concomitant]
     Active Substance: PIPERACILLIN SODIUM\TAZOBACTAM SODIUM
     Route: 041
     Dates: start: 20181115
  21. MAGNESIUM OXIDE. [Concomitant]
     Active Substance: MAGNESIUM OXIDE
     Indication: CONSTIPATION
     Route: 048
  22. VFEND [Suspect]
     Active Substance: VORICONAZOLE
     Indication: BRONCHOPULMONARY ASPERGILLOSIS
     Route: 041
     Dates: start: 20181111, end: 20181111
  23. VFEND [Suspect]
     Active Substance: VORICONAZOLE
     Dosage: DOSE REDUCED
     Route: 041
     Dates: start: 20181112, end: 20181115
  24. UROMITEXAN [Concomitant]
     Active Substance: MESNA
     Indication: ANGIOIMMUNOBLASTIC T-CELL LYMPHOMA
     Dosage: SUPPORTIVE TREATMENT OF LEED THERAPY
     Route: 041
     Dates: start: 20181109, end: 20181110
  25. TAKECAB [Concomitant]
     Active Substance: VONOPRAZAN FUMARATE
     Indication: GASTRIC ULCER
     Route: 048
  26. METOCLOPRAMIDE. [Concomitant]
     Active Substance: METOCLOPRAMIDE
     Indication: ANGIOIMMUNOBLASTIC T-CELL LYMPHOMA
     Route: 041
     Dates: start: 20181110, end: 20181112
  27. EMEND [Concomitant]
     Active Substance: APREPITANT
     Indication: ANGIOIMMUNOBLASTIC T-CELL LYMPHOMA
     Route: 048
     Dates: start: 20181109, end: 20181109
  28. ENDOXAN 1G [Suspect]
     Active Substance: CYCLOPHOSPHAMIDE
     Indication: ANGIOIMMUNOBLASTIC T-CELL LYMPHOMA
     Dosage: LEED THERAPY
     Route: 041
     Dates: start: 20181109, end: 20181110
  29. TEICOPLANIN [Concomitant]
     Active Substance: TEICOPLANIN
     Indication: INFECTION
     Route: 041
     Dates: start: 20181115
  30. LEVOFLOXACIN HEMIHYDRATE [Concomitant]
     Active Substance: LEVOFLOXACIN
     Indication: INFECTION
     Route: 048
     Dates: start: 20181109

REACTIONS (6)
  - Angioimmunoblastic T-cell lymphoma [Fatal]
  - Renal impairment [Recovering/Resolving]
  - Drug interaction [Unknown]
  - Cardiac failure acute [Not Recovered/Not Resolved]
  - Renal disorder [Unknown]
  - Splenic rupture [Fatal]

NARRATIVE: CASE EVENT DATE: 20181115
